FAERS Safety Report 8133159-3 (Version None)
Quarter: 2012Q1

REPORT INFORMATION
  Report Type: 
  Country: None (occurrence: None)
  Receive Date: 20120213
  Receipt Date: 20120209
  Transmission Date: 20120608
  Serious: Yes (Hospitalization, Other)
  Sender: FDA-Public Use
  Company Number: PHHY2012CA009369

PATIENT
  Sex: Female

DRUGS (6)
  1. CRESTOR [Concomitant]
  2. METFORMIN HCL [Concomitant]
  3. HYDRALAZINE HCL [Concomitant]
  4. VASOTEC [Concomitant]
  5. NORVASC [Concomitant]
  6. RASILEZ [Suspect]
     Indication: HYPERTENSION
     Dosage: UNK
     Route: 048
     Dates: start: 20080409, end: 20100710

REACTIONS (3)
  - DYSPHAGIA [None]
  - ISCHAEMIC STROKE [None]
  - HEMIPLEGIA [None]
